FAERS Safety Report 4862614-4 (Version None)
Quarter: 2005Q4

REPORT INFORMATION
  Report Type: 
  Country: None (occurrence: None)
  Receive Date: 20051221
  Receipt Date: 20050511
  Transmission Date: 20060501
  Serious: Yes (Hospitalization)
  Sender: FDA-Public Use
  Company Number: JP-ROCHE-404701

PATIENT
  Age: 8 Month
  Sex: Male
  Weight: 8 kg

DRUGS (6)
  1. ROCEPHIN [Suspect]
     Indication: MENINGITIS
     Route: 041
     Dates: start: 20041005, end: 20041013
  2. CARBENIN [Suspect]
     Indication: MENINGITIS
     Route: 041
     Dates: start: 20041005, end: 20041007
  3. CARBENIN [Suspect]
     Route: 041
     Dates: start: 20041013, end: 20041022
  4. CLAFORAN [Suspect]
     Indication: MENINGITIS
     Route: 050
  5. CEFOTAX [Suspect]
     Indication: MENINGITIS BACTERIAL
     Route: 041
     Dates: start: 20041013, end: 20041015
  6. DECADRON [Concomitant]
     Dosage: 1 MG QID FROM 05 TO 07 OCTOBER 2004, 1 MG BID ON 08 OCTOBER 2004, 0.5 MG BID ON 09 OCTOBER 2004, AN+
     Route: 042
     Dates: start: 20041005, end: 20041010

REACTIONS (8)
  - C-REACTIVE PROTEIN INCREASED [None]
  - CLONIC CONVULSION [None]
  - CONDITION AGGRAVATED [None]
  - CONVULSION [None]
  - MENINGITIS [None]
  - PYREXIA [None]
  - RASH [None]
  - SUBDURAL HYGROMA [None]
